FAERS Safety Report 10239342 (Version 2)
Quarter: 2014Q3

REPORT INFORMATION
  Report Type: Spontaneous
  Country: GB (occurrence: GB)
  Receive Date: 20140616
  Receipt Date: 20140703
  Transmission Date: 20150326
  Serious: Yes (Life-Threatening, Hospitalization)
  Sender: FDA-Public Use
  Company Number: GB-TEVA-486881ISR

PATIENT
  Age: 36 Year
  Sex: Male
  Weight: 75 kg

DRUGS (5)
  1. PANTOPRAZOLE [Concomitant]
     Active Substance: PANTOPRAZOLE SODIUM
     Indication: EPIGASTRIC DISCOMFORT
     Dosage: 40 MILLIGRAM DAILY;
     Route: 048
     Dates: start: 20101018, end: 20140522
  2. CLOZAPINE. [Suspect]
     Active Substance: CLOZAPINE
     Indication: SCHIZOPHRENIA
     Dosage: 325 MILLIGRAM DAILY; 25MG IN THE MORNING AND 300MG IN THE NIGHT
     Route: 048
     Dates: start: 20110401, end: 20140522
  3. MIRTAZAPINE. [Suspect]
     Active Substance: MIRTAZAPINE
     Indication: SCHIZOPHRENIA
     Dosage: 45 MILLIGRAM DAILY;
     Route: 048
     Dates: start: 2000, end: 20140523
  4. ARIPIPRAZOLE [Suspect]
     Active Substance: ARIPIPRAZOLE
     Indication: SCHIZOPHRENIA
     Dosage: 10 MILLIGRAM DAILY;
     Route: 048
     Dates: start: 20100918, end: 20140522
  5. MEBEVERINE [Concomitant]
     Active Substance: MEBEVERINE

REACTIONS (2)
  - Acute hepatic failure [Recovered/Resolved]
  - Abdominal pain [Unknown]

NARRATIVE: CASE EVENT DATE: 2000
